FAERS Safety Report 15226095 (Version 1)
Quarter: 2018Q3

REPORT INFORMATION
  Report Type: Spontaneous
  Country: US (occurrence: US)
  Receive Date: 20180801
  Receipt Date: 20180801
  Transmission Date: 20181010
  Serious: No
  Sender: FDA-Public Use
  Company Number: US-VIIV HEALTHCARE LIMITED-US2018131440

PATIENT
  Age: 47 Year
  Sex: Female

DRUGS (1)
  1. JULUCA [Suspect]
     Active Substance: DOLUTEGRAVIR SODIUM\RILPIVIRINE HYDROCHLORIDE
     Indication: HIV INFECTION
     Dosage: UNK UNK, QD
     Dates: start: 201807, end: 201807

REACTIONS (5)
  - Periorbital disorder [Unknown]
  - Arthralgia [Unknown]
  - Rash [Unknown]
  - Swelling [Unknown]
  - Urticaria [Unknown]
